FAERS Safety Report 20574485 (Version 17)
Quarter: 2023Q1

REPORT INFORMATION
  Report Type: Report from Study
  Country: TW (occurrence: None)
  Receive Date: 20220309
  Receipt Date: 20230329
  Transmission Date: 20230418
  Serious: Yes (Hospitalization)
  Sender: FDA-Public Use
  Company Number: TW-ROCHE-3043624

PATIENT
  Age: 63 Year
  Sex: Male
  Weight: 49 kg

DRUGS (64)
  1. TIRAGOLUMAB [Suspect]
     Active Substance: TIRAGOLUMAB
     Indication: Oesophageal squamous cell carcinoma
     Dosage: START DATE OF MOST RECENT DOSE OF STUDY DRUG PRIOR TO SAE 02-MAR-2022
     Route: 042
     Dates: start: 20211209
  2. ATEZOLIZUMAB [Suspect]
     Active Substance: ATEZOLIZUMAB
     Indication: Oesophageal squamous cell carcinoma
     Dosage: START DATE OF MOST RECENT DOSE OF STUDY DRUG PRIOR TO SAE 02-MAR-2022
     Route: 041
     Dates: start: 20211209
  3. MORPHINE SULFATE [Concomitant]
     Active Substance: MORPHINE SULFATE
     Indication: Pain
     Route: 048
     Dates: start: 20211203
  4. MORPHINE SULFATE [Concomitant]
     Active Substance: MORPHINE SULFATE
     Indication: Chest discomfort
     Route: 048
     Dates: start: 20220119, end: 20220331
  5. CELEBREX [Concomitant]
     Active Substance: CELECOXIB
     Indication: Pain
     Route: 048
     Dates: start: 20211203
  6. CELEBREX [Concomitant]
     Active Substance: CELECOXIB
     Route: 048
     Dates: start: 20220309, end: 20220407
  7. XYZAL [Concomitant]
     Active Substance: LEVOCETIRIZINE DIHYDROCHLORIDE
     Indication: Rash
     Route: 048
     Dates: start: 20211222
  8. DEXCHLORPHENIRAMINE [Concomitant]
     Active Substance: DEXCHLORPHENIRAMINE
     Indication: Rash
     Route: 048
     Dates: start: 20211222
  9. DENOSIN [Concomitant]
     Indication: Rash
     Route: 048
     Dates: start: 20220103
  10. ICHDERM [Concomitant]
     Indication: Rash
     Route: 061
     Dates: start: 20220103
  11. ICHDERM [Concomitant]
     Route: 061
     Dates: start: 20220208, end: 20220215
  12. MOMETASONE FUROATE [Concomitant]
     Active Substance: MOMETASONE FUROATE
     Indication: Rash
     Route: 061
     Dates: start: 20220103
  13. DICLOFENAC [Concomitant]
     Active Substance: DICLOFENAC
     Indication: Chest discomfort
     Route: 048
     Dates: start: 20220124, end: 20220207
  14. DICLOFENAC [Concomitant]
     Active Substance: DICLOFENAC
     Route: 054
     Dates: start: 20220304, end: 20220305
  15. PREDNISOLONE [Concomitant]
     Active Substance: PREDNISOLONE
     Indication: Arthritis
     Route: 048
     Dates: start: 20220124, end: 20220302
  16. DIETARY SUPPLEMENT\HERBALS\MILK THISTLE [Concomitant]
     Active Substance: DIETARY SUPPLEMENT\HERBALS\MILK THISTLE
     Indication: Alanine aminotransferase increased
     Route: 048
     Dates: start: 20220124, end: 20220323
  17. DIETARY SUPPLEMENT\HERBALS\MILK THISTLE [Concomitant]
     Active Substance: DIETARY SUPPLEMENT\HERBALS\MILK THISTLE
     Route: 048
     Dates: start: 20220519, end: 20220528
  18. VITACAL (TAIWAN) [Concomitant]
     Indication: Prophylaxis
     Route: 042
     Dates: start: 20220303, end: 20220303
  19. ACETAMINOPHEN [Concomitant]
     Active Substance: ACETAMINOPHEN
     Indication: Chest discomfort
     Route: 048
     Dates: start: 20220304
  20. ACETAMINOPHEN [Concomitant]
     Active Substance: ACETAMINOPHEN
     Indication: Pyrexia
     Route: 048
     Dates: start: 20220427, end: 20220504
  21. ACETAMINOPHEN [Concomitant]
     Active Substance: ACETAMINOPHEN
     Route: 048
     Dates: start: 20220513, end: 20220805
  22. ACETAMINOPHEN [Concomitant]
     Active Substance: ACETAMINOPHEN
     Route: 048
     Dates: start: 20220305, end: 20220315
  23. BETAMETHASONE [Concomitant]
     Active Substance: BETAMETHASONE
     Route: 061
     Dates: start: 20220304, end: 20220324
  24. THIAMINE HYDROCHLORIDE [Concomitant]
     Active Substance: THIAMINE HYDROCHLORIDE
     Route: 042
     Dates: start: 20220309, end: 20220310
  25. LACTULOSE [Concomitant]
     Active Substance: LACTULOSE
     Indication: Constipation
     Route: 048
     Dates: start: 20211203
  26. LACTULOSE [Concomitant]
     Active Substance: LACTULOSE
     Route: 048
     Dates: start: 20220207, end: 20220221
  27. LACTULOSE [Concomitant]
     Active Substance: LACTULOSE
     Route: 048
     Dates: start: 20220504, end: 20220509
  28. LACTULOSE [Concomitant]
     Active Substance: LACTULOSE
     Route: 048
     Dates: start: 20220512, end: 20220525
  29. UNASYN [Concomitant]
     Active Substance: AMPICILLIN SODIUM\SULBACTAM SODIUM
     Indication: Prophylaxis
     Route: 042
     Dates: start: 20220318
  30. ACETYLCYSTEINE [Concomitant]
     Active Substance: ACETYLCYSTEINE
     Indication: Pneumonia
     Route: 048
     Dates: start: 20220509, end: 20220706
  31. ACETYLCYSTEINE [Concomitant]
     Active Substance: ACETYLCYSTEINE
     Route: 048
     Dates: start: 20220511, end: 20220706
  32. CHLORPHENIRAMINE [Concomitant]
     Active Substance: CHLORPHENIRAMINE
     Indication: Anaemia
     Route: 042
     Dates: start: 20220413, end: 20220413
  33. CHLORPHENIRAMINE [Concomitant]
     Active Substance: CHLORPHENIRAMINE
     Route: 042
     Dates: start: 20220427, end: 20220427
  34. AMOXICILLIN\CLAVULANATE POTASSIUM [Concomitant]
     Active Substance: AMOXICILLIN\CLAVULANATE POTASSIUM
     Indication: Pneumonia
     Dosage: 1 TABLET
     Route: 048
     Dates: start: 20220509, end: 20220516
  35. DICLOREN [Concomitant]
     Indication: Pyrexia
     Route: 054
     Dates: start: 20220304, end: 20220305
  36. DUPHALAC [Concomitant]
     Active Substance: LACTULOSE
     Indication: Constipation
     Route: 048
     Dates: start: 20220302, end: 20220316
  37. DUPHALAC [Concomitant]
     Active Substance: LACTULOSE
     Route: 048
     Dates: start: 20220509, end: 20220525
  38. EURODIN (TAIWAN) [Concomitant]
     Indication: Insomnia
     Route: 048
     Dates: start: 20220302, end: 20220323
  39. FAMOTIDINE FC [Concomitant]
     Indication: Gastrooesophageal reflux disease
     Route: 048
     Dates: start: 20220315, end: 20220325
  40. FAMOTIDINE FC [Concomitant]
     Route: 048
     Dates: start: 20220413, end: 20230116
  41. FLURBIPROFEN [Concomitant]
     Active Substance: FLURBIPROFEN
     Indication: Arthritis
     Route: 061
     Dates: start: 20220124, end: 20220207
  42. FLURBIPROFEN [Concomitant]
     Active Substance: FLURBIPROFEN
     Route: 061
     Dates: start: 20220214, end: 20220314
  43. DIMETHICONE [Concomitant]
     Active Substance: DIMETHICONE
     Indication: Gastrooesophageal reflux disease
     Route: 048
     Dates: start: 20220207, end: 20220221
  44. DIMETHICONE [Concomitant]
     Active Substance: DIMETHICONE
     Route: 048
     Dates: start: 20220323, end: 20220324
  45. LASIX [Concomitant]
     Active Substance: FUROSEMIDE
     Indication: Anaemia
     Route: 042
     Dates: start: 20220413, end: 20220413
  46. LASIX [Concomitant]
     Active Substance: FUROSEMIDE
     Route: 042
     Dates: start: 20220427, end: 20220427
  47. MAGNESIUM OXIDE [Concomitant]
     Active Substance: MAGNESIUM OXIDE
     Indication: Constipation
     Route: 048
     Dates: start: 20220323, end: 20220324
  48. MEGESTROL [Concomitant]
     Active Substance: MEGESTROL
     Route: 048
     Dates: start: 20220323, end: 20220324
  49. METHASONE [Concomitant]
     Indication: Anaemia
     Route: 042
     Dates: start: 20220413, end: 20220413
  50. METHASONE [Concomitant]
     Route: 042
     Dates: start: 20220427, end: 20220427
  51. TOPSYM [Concomitant]
     Indication: Rash
     Route: 061
     Dates: start: 20220208, end: 20220222
  52. VITAMIN B1 [Concomitant]
     Active Substance: THIAMINE HYDROCHLORIDE
     Route: 042
     Dates: start: 20220309, end: 20220310
  53. AMOXICILLIN\CLAVULANATE POTASSIUM [Concomitant]
     Active Substance: AMOXICILLIN\CLAVULANATE POTASSIUM
     Indication: Oesophageal perforation
     Dosage: 1 TABLET
     Route: 048
     Dates: start: 20220315, end: 20220409
  54. AMOXICILLIN\CLAVULANATE POTASSIUM [Concomitant]
     Active Substance: AMOXICILLIN\CLAVULANATE POTASSIUM
  55. FLAMQUIT [Concomitant]
     Indication: Oesophageal perforation
     Route: 061
     Dates: start: 20220207, end: 20220323
  56. BROWN MIXTURE OPIUM [GLYCYRRHIZA GLABRA EXTRACT;PAPAVER SOMNIFERUM POW [Concomitant]
     Indication: Pneumonia
     Route: 048
     Dates: start: 20220516, end: 20220528
  57. CEFTRIAXONE [Concomitant]
     Active Substance: CEFTRIAXONE
     Indication: Pneumonia
     Route: 042
     Dates: start: 20220511, end: 20220513
  58. MEDICON-A [Concomitant]
     Indication: Pneumonia
     Route: 048
     Dates: start: 20220513, end: 20220514
  59. MEDICON-A [Concomitant]
     Route: 048
     Dates: start: 20220514, end: 20220527
  60. TAZOCIN LYO [Concomitant]
     Indication: Pneumonia
     Route: 042
     Dates: start: 20220513, end: 20220529
  61. SENOKOT [Concomitant]
     Active Substance: SENNOSIDES
     Route: 048
     Dates: start: 20220207, end: 20220324
  62. CHLORZOXAZONE [Concomitant]
     Active Substance: CHLORZOXAZONE
     Indication: Chest discomfort
     Route: 048
     Dates: start: 20220302, end: 20220323
  63. RINDERON V [Concomitant]
     Active Substance: BETAMETHASONE VALERATE
     Dates: start: 20220321, end: 20220324
  64. RINDERON V [Concomitant]
     Active Substance: BETAMETHASONE VALERATE
     Dates: start: 20220304, end: 20220315

REACTIONS (2)
  - Oesophageal perforation [Not Recovered/Not Resolved]
  - Device dislocation [Recovered/Resolved]

NARRATIVE: CASE EVENT DATE: 20220303
